FAERS Safety Report 13609472 (Version 1)
Quarter: 2017Q2

REPORT INFORMATION
  Report Type: Report from Study
  Country: US (occurrence: US)
  Receive Date: 20170602
  Receipt Date: 20170602
  Transmission Date: 20170830
  Serious: Yes (Hospitalization)
  Sender: FDA-Public Use
  Company Number: US-VIFOR (INTERNATIONAL) INC.-VIT-2017-06060

PATIENT
  Sex: Female

DRUGS (1)
  1. VELTASSA [Suspect]
     Active Substance: PATIROMER
     Indication: PRODUCT USED FOR UNKNOWN INDICATION
     Dates: start: 20170104

REACTIONS (4)
  - Cerebrovascular accident [Unknown]
  - Rehabilitation therapy [Unknown]
  - Myocardial infarction [Unknown]
  - Vascular graft [Unknown]

NARRATIVE: CASE EVENT DATE: 2017
